FAERS Safety Report 4734033-2 (Version None)
Quarter: 2005Q3

REPORT INFORMATION
  Report Type: 
  Country: None (occurrence: None)
  Receive Date: 20050721
  Receipt Date: 20050509
  Transmission Date: 20060218
  Serious: No
  Sender: FDA-Public Use
  Company Number: 2005SP000634

PATIENT
  Age: 75 Year
  Sex: Male
  Weight: 70.3075 kg

DRUGS (8)
  1. LUNESTA [Suspect]
     Indication: INSOMNIA
     Dosage: 2 MG;HS;UNKNOWN
     Route: 065
     Dates: start: 20050401, end: 20050406
  2. FLOMAX [Concomitant]
  3. SYNTHROID [Concomitant]
  4. COZAAR [Concomitant]
  5. AMIODARONE [Concomitant]
  6. NIACIN [Concomitant]
  7. ASCORBIC ACID [Concomitant]
  8. VITAMIN E [Concomitant]

REACTIONS (1)
  - MIDDLE INSOMNIA [None]
